FAERS Safety Report 9234656 (Version 1)
Quarter: 2013Q1

REPORT INFORMATION
  Report Type: Spontaneous
  Country: US (occurrence: None)
  Receive Date: 20121031
  Receipt Date: 20121031
  Transmission Date: 20140127
  Serious: Yes (Hospitalization)
  Sender: FDA-Public Use
  Company Number: PHEH2012US012903

PATIENT
  Age: 50 Year
  Sex: Female
  Weight: 62.1 kg

DRUGS (5)
  1. GILENYA (FTY) CAPSULE, 0.5MG [Suspect]
     Indication: RELAPSING-REMITTING MULTIPLE SCLEROSIS
     Route: 048
     Dates: start: 20120613
  2. DULOXETINE (DULOXETINE) CAPSULE [Concomitant]
  3. MACROBID (NITROFURANTOIN) CAPSULE [Concomitant]
  4. OXYBUTYNIN (OXYBUTYNIN) TABLET [Concomitant]
  5. ZOLPIDEM (ZOLPIDEM) TABLET [Concomitant]

REACTIONS (8)
  - Heart rate decreased [None]
  - Fatigue [None]
  - Anxiety [None]
  - Somnolence [None]
  - Palpitations [None]
  - Depressed mood [None]
  - Chest pain [None]
  - Dyspnoea [None]
